FAERS Safety Report 5300217-8 (Version None)
Quarter: 2007Q2

REPORT INFORMATION
  Report Type: 
  Country: None (occurrence: None)
  Receive Date: 20070411
  Receipt Date: 20070403
  Transmission Date: 20071010
  Serious: Yes (Other)
  Sender: FDA-Public Use
  Company Number: 2007BI002400

PATIENT
  Age: 38 Year
  Sex: Female

DRUGS (1)
  1. AVONEX [Suspect]
     Indication: MULTIPLE SCLEROSIS
     Dosage: 30 UG;QW;IM
     Route: 030
     Dates: start: 20000901, end: 20060801

REACTIONS (3)
  - CEREBROVASCULAR ACCIDENT [None]
  - FITZ-HUGH-CURTIS SYNDROME [None]
  - HEPATIC STEATOSIS [None]
